FAERS Safety Report 9916214 (Version 1)
Quarter: 2014Q1

REPORT INFORMATION
  Report Type: Spontaneous
  Country: US (occurrence: US)
  Receive Date: 20140221
  Receipt Date: 20140221
  Transmission Date: 20141002
  Serious: Yes (Death, Other)
  Sender: FDA-Public Use
  Company Number: US-JNJFOC-20140211598

PATIENT
  Age: 61 Year
  Sex: Female

DRUGS (3)
  1. REMICADE [Suspect]
     Indication: PRODUCT USED FOR UNKNOWN INDICATION
     Route: 042
  2. HUMIRA [Suspect]
     Indication: CROHN^S DISEASE
     Route: 058
     Dates: start: 20130417
  3. NEXIUM [Concomitant]
     Route: 065

REACTIONS (5)
  - Death [Fatal]
  - Squamous cell carcinoma [Unknown]
  - Vaginal operation [Unknown]
  - Vulvar dysplasia [Unknown]
  - Skin cancer [Unknown]
